FAERS Safety Report 5899754-7 (Version None)
Quarter: 2008Q3

REPORT INFORMATION
  Report Type: 
  Country: None (occurrence: None)
  Receive Date: 20080926
  Receipt Date: 20080917
  Transmission Date: 20090109
  Serious: Yes (Other)
  Sender: FDA-Public Use
  Company Number: US-AMGEN-QUU308465

PATIENT
  Sex: Female

DRUGS (3)
  1. ENBREL [Suspect]
     Indication: RHEUMATOID ARTHRITIS
     Route: 058
  2. PLAQUENIL [Concomitant]
  3. UNSPECIFIED PAIN MEDICATION [Concomitant]

REACTIONS (7)
  - AURA [None]
  - GRAND MAL CONVULSION [None]
  - INFLUENZA LIKE ILLNESS [None]
  - MEMORY IMPAIRMENT [None]
  - PAIN [None]
  - PETIT MAL EPILEPSY [None]
  - VISION BLURRED [None]
